FAERS Safety Report 20786159 (Version 1)
Quarter: 2022Q2

REPORT INFORMATION
  Report Type: Spontaneous
  Country: US (occurrence: None)
  Receive Date: 20220504
  Receipt Date: 20220504
  Transmission Date: 20220721
  Serious: No
  Sender: FDA-Public Use
  Company Number: US-ROCHE-2939683

PATIENT
  Age: 37 Year
  Sex: Female
  Weight: 118.04 kg

DRUGS (1)
  1. OCREVUS [Suspect]
     Active Substance: OCRELIZUMAB
     Indication: Primary progressive multiple sclerosis
     Route: 065
     Dates: start: 2018

REACTIONS (9)
  - Panic attack [Unknown]
  - Headache [Unknown]
  - Aphonia [Unknown]
  - Oropharyngeal pain [Unknown]
  - Infusion related reaction [Unknown]
  - Pain [Unknown]
  - Feeling hot [Unknown]
  - Off label use [Unknown]
  - Ear discomfort [Unknown]

NARRATIVE: CASE EVENT DATE: 20211018
